FAERS Safety Report 18128170 (Version 1)
Quarter: 2020Q3

REPORT INFORMATION
  Report Type: Spontaneous
  Country: US (occurrence: US)
  Receive Date: 20200807
  Receipt Date: 20200807
  Transmission Date: 20201103
  Serious: Yes (Hospitalization)
  Sender: FDA-Public Use
  Company Number: None

PATIENT
  Age: 71 Year
  Sex: Male
  Weight: 79.4 kg

DRUGS (2)
  1. TAXOL [Suspect]
     Active Substance: PACLITAXEL
  2. CARBOPLATIN 1220.8 MG [Suspect]
     Active Substance: CARBOPLATIN

REACTIONS (11)
  - Lung hyperinflation [None]
  - Dysphagia [None]
  - Peripheral swelling [None]
  - Gait disturbance [None]
  - Atelectasis [None]
  - Dehydration [None]
  - Radiation pneumonitis [None]
  - Sinus tachycardia [None]
  - Chronic obstructive pulmonary disease [None]
  - Dyspnoea [None]
  - Dizziness [None]

NARRATIVE: CASE EVENT DATE: 20200615
